FAERS Safety Report 8223916-7 (Version None)
Quarter: 2012Q1

REPORT INFORMATION
  Report Type: 
  Country: None (occurrence: None)
  Receive Date: 20120312
  Receipt Date: 20120305
  Transmission Date: 20120608
  Serious: Yes (Hospitalization)
  Sender: FDA-Public Use
  Company Number: 2011SP058258

PATIENT
  Age: 62 Year
  Sex: Female

DRUGS (8)
  1. RIBAVIRIN [Suspect]
     Indication: HEPATITIS C
     Dosage: 200 MG;BID;PO
     Route: 048
     Dates: start: 20110818
  2. NEUPOGEN [Concomitant]
  3. PEGASYS [Suspect]
     Indication: HEPATITIS C
     Dosage: 90 MCG;QW;SC
     Route: 058
     Dates: start: 20110818, end: 20111205
  4. NEORAL [Concomitant]
  5. ARANESP [Concomitant]
  6. SYNTHROID [Concomitant]
  7. CYCLOSPORINE [Concomitant]
  8. DARBEPOETIN ALFA [Concomitant]

REACTIONS (6)
  - LEUKOPENIA [None]
  - INJECTION SITE PAIN [None]
  - ANAEMIA [None]
  - EPISTAXIS [None]
  - INJECTION SITE DISCOLOURATION [None]
  - THROMBOCYTOPENIA [None]
